FAERS Safety Report 7049299-6 (Version None)
Quarter: 2010Q4

REPORT INFORMATION
  Report Type: 
  Country: None (occurrence: None)
  Receive Date: 20101008
  Receipt Date: 20100928
  Transmission Date: 20110411
  Serious: Yes (Hospitalization)
  Sender: FDA-Public Use
  Company Number: 2010MA001252

PATIENT
  Age: 57 Year
  Sex: Male
  Weight: 79.3341 kg

DRUGS (8)
  1. OXYCODONE HCL [Suspect]
     Indication: PAIN
     Dosage: 15 MG; Q4H; PO
     Route: 048
  2. HEDGEHOG INHIBITOR (IND # 105453) [Suspect]
     Indication: MYELOFIBROSIS
     Dosage: 5 MG; QD; PO
     Route: 048
     Dates: start: 20100512, end: 20100629
  3. PAROXETINE HCL [Concomitant]
  4. ALLOPURINOL [Concomitant]
  5. FUROSEMIDE [Concomitant]
  6. SPIRONOLACTONE [Concomitant]
  7. LEVOTHYROXINE [Concomitant]
  8. LACTULOSE [Concomitant]

REACTIONS (7)
  - CONFUSIONAL STATE [None]
  - CONTUSION [None]
  - FALL [None]
  - HEAD INJURY [None]
  - LACERATION [None]
  - SCRATCH [None]
  - THROMBOCYTOPENIA [None]
